FAERS Safety Report 5637047-3 (Version None)
Quarter: 2008Q1

REPORT INFORMATION
  Report Type: 
  Country: None (occurrence: None)
  Receive Date: 20080225
  Receipt Date: 20070711
  Transmission Date: 20080703
  Serious: No
  Sender: FDA-Public Use
  Company Number: US-BRISTOL-MYERS SQUIBB COMPANY-13842042

PATIENT

DRUGS (9)
  1. GLUCOPHAGE [Suspect]
     Route: 048
  2. TOPROL-XL [Concomitant]
     Route: 048
  3. ZYRTEC [Concomitant]
     Route: 048
  4. DETROL LA [Concomitant]
     Route: 048
  5. CITALOPRAM HYDROBROMIDE [Concomitant]
     Route: 048
  6. SYNTHROID [Concomitant]
     Route: 048
  7. GLUCOTROL XL [Concomitant]
     Route: 048
  8. NEXIUM [Concomitant]
     Route: 048
  9. LIPITOR [Concomitant]
     Route: 048

REACTIONS (2)
  - DIABETES MELLITUS INADEQUATE CONTROL [None]
  - DRUG INEFFECTIVE [None]
